FAERS Safety Report 21115189 (Version 1)
Quarter: 2022Q3

REPORT INFORMATION
  Report Type: Report from Study
  Country: US (occurrence: US)
  Receive Date: 20220721
  Receipt Date: 20220721
  Transmission Date: 20221027
  Serious: Yes (Death, Hospitalization, Other)
  Sender: FDA-Public Use
  Company Number: US-JNJFOC-20220726220

PATIENT

DRUGS (2)
  1. TOPIRAMATE [Suspect]
     Active Substance: TOPIRAMATE
     Indication: Epilepsy
     Route: 048
  2. TOPIRAMATE [Suspect]
     Active Substance: TOPIRAMATE
     Indication: Psychiatric symptom

REACTIONS (3)
  - Intentional product misuse [Fatal]
  - Hospitalisation [Unknown]
  - Adverse drug reaction [Unknown]
